FAERS Safety Report 6583463-5 (Version None)
Quarter: 2010Q1

REPORT INFORMATION
  Report Type: 
  Country: None (occurrence: None)
  Receive Date: 20100216
  Receipt Date: 20100202
  Transmission Date: 20100710
  Serious: Yes (Death, Other)
  Sender: FDA-Public Use
  Company Number: US-BAYER-200840615NA

PATIENT
  Sex: Female
  Weight: 65 kg

DRUGS (46)
  1. MAGNEVIST [Suspect]
     Indication: NUCLEAR MAGNETIC RESONANCE IMAGING
  2. OMNISCAN [Suspect]
     Indication: NUCLEAR MAGNETIC RESONANCE IMAGING
  3. OPTIMARK [Suspect]
     Indication: NUCLEAR MAGNETIC RESONANCE IMAGING
  4. MULTIHANCE [Suspect]
     Indication: NUCLEAR MAGNETIC RESONANCE IMAGING
  5. UNSPECIFIED GADOLINIUM BASED CONTRAST AGENT [Suspect]
     Dosage: APPROXIMATELY 10-15ML; MAGNEVIST OR MULTIHANCE
     Dates: start: 20060629, end: 20060629
  6. UNSPECIFIED GADOLINIUM BASED CONTRAST AGENT [Suspect]
     Dosage: PER PATIENT
     Dates: start: 20050101, end: 20050101
  7. OXYGEN [Concomitant]
  8. MORPHINE SULFATE [Concomitant]
     Dosage: Q2H
  9. IPRATROPIUM [Concomitant]
     Route: 055
  10. TEMAZEPAM [Concomitant]
     Dosage: QHS
  11. AMLODIPINE [Concomitant]
     Dosage: TOTAL DAILY DOSE: 1 MG
     Route: 048
  12. ATORVASTATIN [Concomitant]
     Dosage: TOTAL DAILY DOSE: 10 MG
     Route: 048
  13. SENSIPAR [Concomitant]
     Dosage: TOTAL DAILY DOSE: 90 MG
     Route: 048
  14. DOXAZOSIN MESYLATE [Concomitant]
  15. ENOXAPARIN SODIUM [Concomitant]
  16. COZAAR [Concomitant]
  17. PROTONIX [Concomitant]
     Dosage: TOTAL DAILY DOSE: 40 MG
     Route: 048
  18. MUCOMYST [Concomitant]
     Route: 055
  19. RENAGEL [Concomitant]
     Dosage: TOTAL DAILY DOSE: 9600 MG
     Route: 048
     Dates: start: 20060901
  20. ACETAMINOPHEN [Concomitant]
     Dosage: Q4H PRN
     Route: 048
  21. ACETAMINOPHEN W/ CODEINE [Concomitant]
     Dosage: 1-2 TABS Q4H
     Route: 048
  22. ALBUMIN (HUMAN) [Concomitant]
     Dosage: WITH DIALYSIS
  23. MANNITOL [Concomitant]
     Dosage: WITH DIALYSIS
  24. ALPRAZOLAM [Concomitant]
     Dosage: TOTAL DAILY DOSE: 1 MG
     Route: 048
  25. BISACODYL [Concomitant]
     Route: 054
  26. INSULIN HUMAN REGULAR [Concomitant]
     Route: 058
  27. TEMAZEPAM [Concomitant]
     Dosage: QHS
  28. ARANESP [Concomitant]
     Dosage: 60 MCG ONE TIME WEEKLY
     Route: 058
  29. METOPROLOL TARTRATE [Concomitant]
     Dosage: TOTAL DAILY DOSE: 50 MG  UNIT DOSE: 25 MG
     Route: 048
  30. COUMADIN [Concomitant]
  31. NEPHROVITE [Concomitant]
     Dosage: 1 CAPLET
     Route: 048
  32. CARISOPRODOL [Concomitant]
     Dosage: 1 TAB 4 X DAY
  33. CALCIUM CARBONATE [Concomitant]
     Dosage: 1000 MG - 2 TABS- Q8H CHEW
     Route: 048
  34. LIPITOR [Concomitant]
     Dosage: TOTAL DAILY DOSE: 10 MG
     Route: 048
  35. ALBUTEROL [Concomitant]
     Route: 055
     Dates: start: 20060928
  36. PHENERGAN HCL [Concomitant]
     Route: 054
  37. GLIPIZIDE [Concomitant]
  38. CATAPRES [Concomitant]
  39. VICODIN [Concomitant]
  40. EPOGEN [Concomitant]
     Route: 042
     Dates: start: 20031108
  41. EPOGEN [Concomitant]
     Dosage: 4000 UNITS ON ^SPECIAL DAYS^
     Route: 058
     Dates: start: 20010821
  42. ZEMPLAR [Concomitant]
     Dosage: TOTAL DAILY DOSE: 11 ?G
     Route: 042
     Dates: start: 20031108
  43. FERRLECIT [Concomitant]
     Route: 042
     Dates: start: 20031108
  44. PHOSLO [Concomitant]
     Dosage: TOTAL DAILY DOSE: 6003 MG  UNIT DOSE: 667 MG
     Route: 048
     Dates: start: 20031108
  45. INFED [Concomitant]
     Dosage: 100 MG
     Route: 042
     Dates: start: 20010801
  46. NEURONTIN [Concomitant]
     Dosage: TOTAL DAILY DOSE: 100 MG
     Route: 048
     Dates: start: 20010801

REACTIONS (30)
  - ANXIETY [None]
  - ASTHENIA [None]
  - BURNING SENSATION [None]
  - DEFORMITY [None]
  - DRY SKIN [None]
  - EMOTIONAL DISTRESS [None]
  - FIBROSIS [None]
  - GAIT DISTURBANCE [None]
  - GENERAL PHYSICAL HEALTH DETERIORATION [None]
  - HYPERAESTHESIA [None]
  - HYPOAESTHESIA [None]
  - JOINT CONTRACTURE [None]
  - JOINT RANGE OF MOTION DECREASED [None]
  - JOINT STIFFNESS [None]
  - LIVEDO RETICULARIS [None]
  - MOBILITY DECREASED [None]
  - MUSCULAR WEAKNESS [None]
  - NEPHROGENIC SYSTEMIC FIBROSIS [None]
  - OEDEMA PERIPHERAL [None]
  - PAIN [None]
  - PAIN IN EXTREMITY [None]
  - PIGMENTATION DISORDER [None]
  - POST INFLAMMATORY PIGMENTATION CHANGE [None]
  - PRURITUS [None]
  - SCAR [None]
  - SKIN DISCOLOURATION [None]
  - SKIN EXFOLIATION [None]
  - SKIN HYPERTROPHY [None]
  - SKIN TIGHTNESS [None]
  - SKIN TURGOR DECREASED [None]
